FAERS Safety Report 23417906 (Version 1)
Quarter: 2024Q1

REPORT INFORMATION
  Report Type: Spontaneous
  Country: US (occurrence: None)
  Receive Date: 20240118
  Receipt Date: 20240118
  Transmission Date: 20240410
  Serious: No
  Sender: FDA-Public Use
  Company Number: None

PATIENT
  Sex: Male

DRUGS (1)
  1. COSENTYX [Suspect]
     Active Substance: SECUKINUMAB
     Indication: Psoriatic arthropathy
     Dosage: 150MG EVERY 4 WEEKS SC?
     Route: 058
     Dates: start: 202206

REACTIONS (2)
  - Drug ineffective [None]
  - Psoriatic arthropathy [None]

NARRATIVE: CASE EVENT DATE: 20220701
